FAERS Safety Report 13460135 (Version 4)
Quarter: 2017Q4

REPORT INFORMATION
  Report Type: Spontaneous
  Country: US (occurrence: US)
  Receive Date: 20170420
  Receipt Date: 20171117
  Transmission Date: 20180320
  Serious: Yes (Other)
  Sender: FDA-Public Use
  Company Number: US-ASTRAZENECA-2017SE39599

PATIENT
  Age: 25526 Day
  Sex: Female
  Weight: 66.7 kg

DRUGS (24)
  1. METHADONE [Concomitant]
     Active Substance: METHADONE HYDROCHLORIDE
     Indication: HALLUCINATION
  2. ASPIRIN. [Concomitant]
     Active Substance: ASPIRIN
     Indication: ABDOMINAL PAIN UPPER
  3. ETODOLAC. [Concomitant]
     Active Substance: ETODOLAC
     Indication: OSTEOARTHRITIS
     Dosage: 400 MG, TAKES ONE PILL TWICE A DAY WITH FOOD
     Route: 048
  4. BENADRYL [Concomitant]
     Active Substance: DIPHENHYDRAMINE HYDROCHLORIDE
     Indication: HYPERSENSITIVITY
     Route: 048
  5. XANAX -ALPRAZOLAM [Concomitant]
     Indication: PANIC ATTACK
     Dosage: GENERIC, 1 MG, EVERY 8 - 12 HOURS
     Route: 048
  6. DURAGESIC [Concomitant]
     Active Substance: FENTANYL
     Indication: RASH
  7. FUROSEMIDE. [Concomitant]
     Active Substance: FUROSEMIDE
     Indication: SWELLING
     Dosage: WATER PILL THAT SHE TAKES TWICE A DAY ONE IN MORNING AND ONE IN EVENING, 40 MG, PILL
     Route: 048
  8. PRAVASTATIN. [Concomitant]
     Active Substance: PRAVASTATIN
     Indication: BLOOD CHOLESTEROL ABNORMAL
     Route: 048
     Dates: start: 2012
  9. MOVANTIK [Suspect]
     Active Substance: NALOXEGOL OXALATE
     Indication: CONSTIPATION
     Route: 048
     Dates: start: 2016, end: 20170409
  10. OXYCODONE/ACECAMINOPEN [Suspect]
     Active Substance: ACETAMINOPHEN\OXYCODONE HYDROCHLORIDE
     Indication: PAIN
     Dosage: 300, EVERY 4 - 6 HOURS
     Route: 048
  11. TRAZODONE [Concomitant]
     Active Substance: TRAZODONE HYDROCHLORIDE
     Indication: SLEEP DISORDER
     Dosage: 300 MG 2 PILLS AT BEDTIME
     Route: 048
  12. FUROSEMIDE. [Concomitant]
     Active Substance: FUROSEMIDE
     Indication: FLUID RETENTION
     Dosage: WATER PILL THAT SHE TAKES TWICE A DAY ONE IN MORNING AND ONE IN EVENING, 40 MG, PILL
     Route: 048
  13. CYCLOBENZAPRINE. [Concomitant]
     Active Substance: CYCLOBENZAPRINE
     Indication: MUSCLE RELAXANT THERAPY
     Dosage: ONCE A DAY AT BED TIME
     Route: 048
  14. AMITRIPTYLINE [Concomitant]
     Active Substance: AMITRIPTYLINE
     Indication: RAYNAUD^S PHENOMENON
     Route: 048
  15. POTASSIUM CHLORIDE. [Concomitant]
     Active Substance: POTASSIUM CHLORIDE
     Route: 048
  16. MOVANTIK [Suspect]
     Active Substance: NALOXEGOL OXALATE
     Indication: BOWEL MOVEMENT IRREGULARITY
     Route: 048
     Dates: start: 2016, end: 20170409
  17. BENADRYL [Concomitant]
     Active Substance: DIPHENHYDRAMINE HYDROCHLORIDE
     Indication: PRURITUS
     Route: 048
  18. PERCOCET [Concomitant]
     Active Substance: ACETAMINOPHEN\OXYCODONE HYDROCHLORIDE
     Dosage: 10/325 MG DAILY
  19. MOVANTIK [Suspect]
     Active Substance: NALOXEGOL OXALATE
     Indication: BOWEL MOVEMENT IRREGULARITY
     Route: 048
     Dates: end: 201706
  20. OMEPRAZOLE. [Concomitant]
     Active Substance: OMEPRAZOLE
     Indication: ABDOMINAL DISCOMFORT
     Dosage: 40 MG, SHE TAKES THE PILL 1 HOUR BEFORE SHE EATS A MEAL IN THE MORNING
     Route: 048
  21. BABY ASPIRIN [Concomitant]
     Active Substance: ASPIRIN
     Indication: CARDIAC MURMUR
     Route: 048
  22. OXYCODONE [Concomitant]
     Active Substance: OXYCODONE
  23. DURAGESIC [Concomitant]
     Active Substance: FENTANYL
     Indication: PRURITUS
  24. MOVANTIK [Suspect]
     Active Substance: NALOXEGOL OXALATE
     Indication: CONSTIPATION
     Route: 048
     Dates: end: 201706

REACTIONS (14)
  - Throat tightness [Unknown]
  - Back pain [Unknown]
  - Hypersensitivity [Unknown]
  - Gastric dilatation [Unknown]
  - Constipation [Unknown]
  - Malaise [Unknown]
  - Insomnia [Unknown]
  - Pruritus [Recovering/Resolving]
  - Dysphagia [Unknown]
  - Malaise [Unknown]
  - Pharyngeal oedema [Recovering/Resolving]
  - Abdominal pain [Recovering/Resolving]
  - Bowel movement irregularity [Unknown]
  - Medication error [Unknown]

NARRATIVE: CASE EVENT DATE: 20170221
